FAERS Safety Report 10492135 (Version 1)
Quarter: 2014Q4

REPORT INFORMATION
  Report Type: Spontaneous
  Country: US (occurrence: US)
  Receive Date: 20141002
  Receipt Date: 20141002
  Transmission Date: 20150528
  Serious: No
  Sender: FDA-Public Use
  Company Number: US-GLAXOSMITHKLINE-A1065859A

PATIENT
  Age: 53 Year
  Sex: Female
  Weight: 89.6 kg

DRUGS (6)
  1. PROVENTIL [Concomitant]
     Active Substance: ALBUTEROL
  2. FLONASE [Concomitant]
     Active Substance: FLUTICASONE PROPIONATE
  3. ADVAIR HFA [Suspect]
     Active Substance: FLUTICASONE PROPIONATE\SALMETEROL XINAFOATE
     Indication: ASTHMA
     Dosage: 1PUFF TWICE PER DAY
     Route: 055
     Dates: start: 20120316
  4. BISOPROLOL + HCTZ [Concomitant]
  5. LISINOPRIL. [Concomitant]
     Active Substance: LISINOPRIL
  6. SPIRONOLACTONE. [Concomitant]
     Active Substance: SPIRONOLACTONE

REACTIONS (12)
  - Nasal congestion [Recovered/Resolved]
  - Wheezing [Unknown]
  - Sinusitis [Recovered/Resolved]
  - Productive cough [Recovered/Resolved]
  - Musculoskeletal pain [Unknown]
  - Sinus headache [Recovered/Resolved]
  - Sinus headache [Unknown]
  - Dyspnoea [Unknown]
  - Respiratory tract congestion [Recovered/Resolved]
  - Chronic obstructive pulmonary disease [Unknown]
  - Dyspnoea exertional [Unknown]
  - Therapeutic response unexpected [Recovered/Resolved]

NARRATIVE: CASE EVENT DATE: 201402
